FAERS Safety Report 12956735 (Version 1)
Quarter: 2016Q4

REPORT INFORMATION
  Report Type: Spontaneous
  Country: IT (occurrence: IT)
  Receive Date: 20161119
  Receipt Date: 20161119
  Transmission Date: 20170207
  Serious: Yes (Hospitalization)
  Sender: FDA-Public Use
  Company Number: IT-BAXTER-2016BAX057512

PATIENT
  Age: 67 Year
  Sex: Female
  Weight: 61 kg

DRUGS (8)
  1. ISOLYTE SOLUZIONE PER INFUSIONE (DEXTROSE\MAGNESIUM CHLORIDE\POTASSIUM CHLORIDE\POTASSIUM PHOSPHATE, DIBASIC\SODIUM LACTATE) [Suspect]
     Active Substance: DEXTROSE\MAGNESIUM CHLORIDE\POTASSIUM CHLORIDE\POTASSIUM PHOSPHATE, DIBASIC\SODIUM LACTATE
     Indication: HYDROTHERAPY
     Route: 042
     Dates: start: 20161026, end: 20161026
  2. HOLOXAN [Suspect]
     Active Substance: IFOSFAMIDE
     Indication: SARCOMA
  3. DECADRON [Suspect]
     Active Substance: DEXAMETHASONE
     Indication: PRODUCT USED FOR UNKNOWN INDICATION
     Route: 065
     Dates: start: 20161026, end: 20161027
  4. HOLOXAN [Suspect]
     Active Substance: IFOSFAMIDE
     Indication: CARDIAC NEOPLASM MALIGNANT
     Route: 042
     Dates: start: 20161026, end: 20161027
  5. ADRIBLASTINA [Suspect]
     Active Substance: DOXORUBICIN HYDROCHLORIDE
     Indication: PRODUCT USED FOR UNKNOWN INDICATION
     Route: 042
     Dates: start: 20161026, end: 20161027
  6. ALOXI [Suspect]
     Active Substance: PALONOSETRON HYDROCHLORIDE
     Indication: PRODUCT USED FOR UNKNOWN INDICATION
     Route: 040
     Dates: start: 20161026, end: 20161027
  7. UROMITEXAN 400 MG/ 4ML [Suspect]
     Active Substance: MESNA
     Indication: PRODUCT USED FOR UNKNOWN INDICATION
     Route: 042
     Dates: start: 20161026, end: 20161027
  8. ISOLYTE SOLUZIONE PER INFUSIONE (DEXTROSE\MAGNESIUM CHLORIDE\POTASSIUM CHLORIDE\POTASSIUM PHOSPHATE, DIBASIC\SODIUM LACTATE) [Suspect]
     Active Substance: DEXTROSE\MAGNESIUM CHLORIDE\POTASSIUM CHLORIDE\POTASSIUM PHOSPHATE, DIBASIC\SODIUM LACTATE
     Dosage: DOSE INCREASED
     Route: 042
     Dates: start: 201610

REACTIONS (3)
  - Neuropsychiatric symptoms [Recovered/Resolved]
  - Disorientation [Recovered/Resolved]
  - Confusional state [Recovered/Resolved]

NARRATIVE: CASE EVENT DATE: 20161027
